FAERS Safety Report 4385542-X (Version None)
Quarter: 2004Q2

REPORT INFORMATION
  Report Type: 
  Country: None (occurrence: None)
  Receive Date: 20040622
  Receipt Date: 20040330
  Transmission Date: 20050107
  Serious: Yes (Death)
  Sender: FDA-Public Use
  Company Number: A01200402647

PATIENT
  Age: 56 Year
  Sex: Male

DRUGS (2)
  1. ELOXATIN [Suspect]
     Indication: PANCREATIC CARCINOMA
     Dosage: 130 MG/M2 OTHER INTRAVENOUS NOS
     Route: 042
     Dates: start: 20040227, end: 20040227
  2. GEMZAR [Concomitant]

REACTIONS (1)
  - CARDIAC ARREST [None]
